FAERS Safety Report 5086731-1 (Version None)
Quarter: 2006Q3

REPORT INFORMATION
  Report Type: 
  Country: None (occurrence: None)
  Receive Date: 20060823
  Receipt Date: 20060808
  Transmission Date: 20061208
  Serious: Yes (Hospitalization)
  Sender: FDA-Public Use
  Company Number: US-ROCHE-459000

PATIENT
  Age: 61 Year
  Sex: Female

DRUGS (5)
  1. PEGASYS [Suspect]
     Route: 058
     Dates: start: 20051227
  2. RIBASPHERE [Suspect]
     Dosage: DRUG NAME REPORTED AS RIBASPHERE (THREE RIVERS).
     Route: 048
     Dates: start: 20051227
  3. PROGRAF [Concomitant]
     Indication: TRANSPLANT
  4. INSULIN [Concomitant]
  5. THYROID TAB [Concomitant]
     Indication: HYPOTHYROIDISM
     Dosage: DRUG NAME REPORTED AS THYROID MED (NOS).

REACTIONS (7)
  - ANOREXIA [None]
  - ASTHENIA [None]
  - DIARRHOEA [None]
  - DIVERTICULITIS [None]
  - DYSPNOEA [None]
  - FATIGUE [None]
  - RECTAL HAEMORRHAGE [None]
